FAERS Safety Report 8079986-2 (Version None)
Quarter: 2012Q1

REPORT INFORMATION
  Report Type: 
  Country: None (occurrence: None)
  Receive Date: 20120128
  Receipt Date: 20110811
  Transmission Date: 20120608
  Serious: No
  Sender: FDA-Public Use
  Company Number: US-ABBOTT-11P-163-0845776-00

PATIENT
  Age: 26 Year
  Sex: Male

DRUGS (1)
  1. HUMIRA [Suspect]
     Indication: PSORIASIS
     Dosage: LOADING DOSE
     Dates: start: 20110713

REACTIONS (7)
  - PYREXIA [None]
  - LYMPHADENOPATHY [None]
  - NODULE [None]
  - LETHARGY [None]
  - WHITE BLOOD CELL COUNT INCREASED [None]
  - MALAISE [None]
  - INFECTED BITES [None]
